FAERS Safety Report 25634435 (Version 1)
Quarter: 2025Q3

REPORT INFORMATION
  Report Type: Spontaneous
  Country: EU (occurrence: EU)
  Receive Date: 20250801
  Receipt Date: 20250801
  Transmission Date: 20251020
  Serious: Yes (Hospitalization)
  Sender: AIRGAS
  Company Number: EU-AFSSAPS-AVTO2025000094

PATIENT
  Age: 15 Year
  Sex: Female

DRUGS (1)
  1. NITROUS OXIDE [Suspect]
     Active Substance: NITROUS OXIDE
     Indication: Product used for unknown indication
     Dates: start: 20240801, end: 20250616

REACTIONS (2)
  - Suicidal ideation [Recovering/Resolving]
  - Withdrawal syndrome [Recovered/Resolved]
